FAERS Safety Report 18241553 (Version 1)
Quarter: 2020Q3

REPORT INFORMATION
  Report Type: Spontaneous
  Country: US (occurrence: US)
  Receive Date: 20200908
  Receipt Date: 20200908
  Transmission Date: 20201103
  Serious: No
  Sender: FDA-Public Use
  Company Number: US-GLENMARK PHARMACEUTICALS-2020GMK047761

PATIENT

DRUGS (1)
  1. ESTRADIOL VAGINAL INSERTS USP [Suspect]
     Active Substance: ESTRADIOL
     Indication: MENOPAUSE
     Dosage: 10 MICROGRAM, TWICE A WEEK (MONDAY AND THURSDAY; 20MCG A WEEK
     Route: 067
     Dates: start: 2014

REACTIONS (4)
  - Drug ineffective for unapproved indication [Unknown]
  - Drug delivery system issue [Unknown]
  - Device ineffective [Unknown]
  - Product quality issue [Unknown]

NARRATIVE: CASE EVENT DATE: 2014
